FAERS Safety Report 16912960 (Version 1)
Quarter: 2019Q4

REPORT INFORMATION
  Report Type: Report from Study
  Country: CA (occurrence: CA)
  Receive Date: 20191014
  Receipt Date: 20191014
  Transmission Date: 20200122
  Serious: No
  Sender: FDA-Public Use
  Company Number: CA-BEH-2019108072

PATIENT
  Age: 35 Year
  Sex: Female

DRUGS (2)
  1. HIZENTRA [Suspect]
     Active Substance: HUMAN IMMUNOGLOBULIN G
     Indication: INFERTILITY
     Dosage: 14 GRAM, QW
     Route: 058
     Dates: start: 201909
  2. HIZENTRA [Suspect]
     Active Substance: HUMAN IMMUNOGLOBULIN G
     Dosage: 12 GRAM, TOT
     Route: 058
     Dates: start: 201909, end: 201909

REACTIONS (4)
  - Product use in unapproved indication [Unknown]
  - Headache [Recovered/Resolved]
  - Underdose [Unknown]
  - No adverse event [Unknown]

NARRATIVE: CASE EVENT DATE: 20191007
